FAERS Safety Report 24696537 (Version 4)
Quarter: 2024Q4

REPORT INFORMATION
  Report Type: Spontaneous
  Country: US (occurrence: US)
  Receive Date: 20241204
  Receipt Date: 20241206
  Transmission Date: 20250114
  Serious: Yes (Death)
  Sender: ROCHE
  Company Number: US-ROCHE-10000144309

PATIENT
  Age: 77 Year
  Sex: Male
  Weight: 80.3 kg

DRUGS (3)
  1. ERIVEDGE [Suspect]
     Active Substance: VISMODEGIB
     Indication: Basal cell carcinoma
     Route: 048
     Dates: start: 20240305, end: 20241126
  2. ERIVEDGE [Suspect]
     Active Substance: VISMODEGIB
     Route: 048
     Dates: start: 20240304, end: 20241126
  3. XARELTO [Concomitant]
     Active Substance: RIVAROXABAN
     Dates: start: 20231128

REACTIONS (3)
  - Completed suicide [Fatal]
  - Pain [Unknown]
  - Decreased appetite [Unknown]

NARRATIVE: CASE EVENT DATE: 20241126
